FAERS Safety Report 15742408 (Version 1)
Quarter: 2018Q4

REPORT INFORMATION
  Report Type: Report from Study
  Country: GT (occurrence: GT)
  Receive Date: 20181219
  Receipt Date: 20181219
  Transmission Date: 20190205
  Serious: Yes (Other)
  Sender: FDA-Public Use
  Company Number: PHHY2018GT190048

PATIENT
  Age: 60 Year
  Sex: Female

DRUGS (1)
  1. EXFORGE [Suspect]
     Active Substance: AMLODIPINE BESYLATE\VALSARTAN
     Indication: PRODUCT USED FOR UNKNOWN INDICATION
     Dosage: 1 DF, (10 MG AMLODIPINE, 320 MG VALSARTAN)
     Route: 065

REACTIONS (2)
  - Visual impairment [Unknown]
  - Eye haemorrhage [Unknown]
